FAERS Safety Report 9835613 (Version 1)
Quarter: 2014Q1

REPORT INFORMATION
  Report Type: Report from Study
  Country: CO (occurrence: CO)
  Receive Date: 20140122
  Receipt Date: 20140122
  Transmission Date: 20141002
  Serious: Yes (Death)
  Sender: FDA-Public Use
  Company Number: CO-ABBVIE-14P-036-1192863-00

PATIENT
  Age: 73 Year
  Sex: Female
  Weight: 45 kg

DRUGS (4)
  1. HUMIRA [Suspect]
     Indication: RHEUMATOID ARTHRITIS
     Route: 058
     Dates: start: 20130607, end: 20131220
  2. METHOTREXATE [Concomitant]
     Indication: PRODUCT USED FOR UNKNOWN INDICATION
  3. FOLIC ACID [Concomitant]
     Indication: PRODUCT USED FOR UNKNOWN INDICATION
     Route: 048
  4. PREDNISOLONE [Concomitant]
     Indication: PRODUCT USED FOR UNKNOWN INDICATION

REACTIONS (7)
  - Decreased appetite [Fatal]
  - Abdominal pain [Fatal]
  - Pneumonia [Fatal]
  - Renal failure [Fatal]
  - Urinary tract infection [Fatal]
  - Uterine prolapse [Fatal]
  - Respiratory distress [Fatal]
